FAERS Safety Report 5280036-1 (Version None)
Quarter: 2007Q1

REPORT INFORMATION
  Report Type: 
  Country: None (occurrence: None)
  Receive Date: 20061229
  Receipt Date: 20061026
  Transmission Date: 20070707
  Serious: Yes (Hospitalization)
  Sender: FDA-Public Use
  Company Number: 2006UW07634

PATIENT
  Age: 57 Year
  Sex: Male

DRUGS (4)
  1. CRESTOR [Suspect]
     Dosage: 20 MG PO
     Route: 048
     Dates: start: 20040101, end: 20040301
  2. CRESTOR [Suspect]
     Dosage: 40 MG PO
     Route: 048
     Dates: start: 20040331, end: 20060201
  3. VYTORIN [Suspect]
     Dosage: 10/40 MG
  4. EZETIMIBE [Suspect]
     Dosage: 10 MG

REACTIONS (2)
  - RENAL FAILURE ACUTE [None]
  - RHABDOMYOLYSIS [None]
